FAERS Safety Report 10262703 (Version 2)
Quarter: 2014Q2

REPORT INFORMATION
  Report Type: Report from Study
  Country: US (occurrence: US)
  Receive Date: 20140626
  Receipt Date: 20140626
  Transmission Date: 20141212
  Serious: Yes (Life-Threatening, Hospitalization)
  Sender: FDA-Public Use
  Company Number: US-MYLANLABS-2013S1012438

PATIENT
  Age: 34 Year
  Sex: Male
  Weight: 60.5 kg

DRUGS (16)
  1. CLOZAPINE TABLETS [Suspect]
     Indication: SCHIZOPHRENIA
     Route: 048
     Dates: start: 20130514, end: 20130528
  2. CLOZAPINE TABLETS [Suspect]
     Indication: PSYCHOTIC DISORDER
     Route: 048
     Dates: start: 20130514, end: 20130528
  3. CLOZAPINE TABLETS [Suspect]
     Indication: SCHIZOAFFECTIVE DISORDER
     Route: 048
     Dates: start: 20130514, end: 20130528
  4. DEPAKOTE [Concomitant]
  5. RISPERIDONE ODT [Concomitant]
     Dosage: ORALLY DISINTEGRATING
     Route: 048
  6. CLONAZEPAM [Concomitant]
     Route: 048
  7. FOLIC ACID [Concomitant]
     Route: 048
  8. MULTIVITAMIN [Concomitant]
     Route: 048
  9. THIAMINE HCL [Concomitant]
     Route: 048
  10. DEPAKENE [Concomitant]
     Route: 048
  11. ACETAMINOPHEN [Concomitant]
     Route: 048
  12. BENZTROPINE MESYLATE [Concomitant]
     Route: 048
  13. HALOPERIDOL [Concomitant]
     Route: 048
  14. TRAZODONE [Concomitant]
     Route: 048
  15. ALUMHYDROX W/MAGNCARB/MAGNHYDROX/SIMETHICONE [Concomitant]
     Route: 048
  16. MILK OF MAGNESIA [Concomitant]
     Route: 048

REACTIONS (2)
  - Myocardial infarction [Recovered/Resolved]
  - Myocarditis [Recovered/Resolved]
